FAERS Safety Report 17175060 (Version 1)
Quarter: 2019Q4

REPORT INFORMATION
  Report Type: Report from Study
  Country: US (occurrence: US)
  Receive Date: 20191219
  Receipt Date: 20191219
  Transmission Date: 20200122
  Serious: Yes (Other)
  Sender: FDA-Public Use
  Company Number: US-EISAI MEDICAL RESEARCH-EC-2019-064468

PATIENT
  Age: 75 Year
  Sex: Female

DRUGS (1)
  1. LENVIMA [Suspect]
     Active Substance: LENVATINIB
     Indication: ENDOMETRIAL CANCER
     Route: 048
     Dates: start: 20191021

REACTIONS (7)
  - Pancreatitis [Unknown]
  - Dizziness [Not Recovered/Not Resolved]
  - Hypertension [Not Recovered/Not Resolved]
  - Eye disorder [Not Recovered/Not Resolved]
  - Tongue discomfort [Unknown]
  - Diabetes mellitus [Unknown]
  - Asthenia [Not Recovered/Not Resolved]

NARRATIVE: CASE EVENT DATE: 201911
